FAERS Safety Report 4429691-6 (Version None)
Quarter: 2004Q3

REPORT INFORMATION
  Report Type: 
  Country: None (occurrence: None)
  Receive Date: 20040816
  Receipt Date: 20040803
  Transmission Date: 20050211
  Serious: Yes (Other)
  Sender: FDA-Public Use
  Company Number: 2004053305

PATIENT
  Age: 72 Year
  Sex: Female

DRUGS (16)
  1. LIPITOR [Suspect]
     Indication: ILL-DEFINED DISORDER
     Dosage: 20 MG (20 MG, 1 IN 1 D), ORAL
     Route: 048
  2. ATENOLOL [Concomitant]
  3. BUPIVACAINE [Concomitant]
  4. CEFAZOLIN [Concomitant]
  5. DOCUSATE SODIUM (DOCUSATE SODIUM) [Concomitant]
  6. FUROSEMIDE [Concomitant]
  7. DIMENHYDRINATE (DIMENHYDRINATE) [Concomitant]
  8. LORAZEPAM [Concomitant]
  9. MIDAZOLAM HCL [Concomitant]
  10. MORPHINE [Concomitant]
  11. ONDANSETRON HCL [Concomitant]
  12. PROPOFOL [Concomitant]
  13. RAMIPRIL [Concomitant]
  14. ACETAMINOPHEN [Concomitant]
  15. CODEINE PHOSPHATE AND ACETAMINOPHEN [Concomitant]
  16. WARFARIN (WARFARIN) [Concomitant]

REACTIONS (4)
  - DEPRESSED LEVEL OF CONSCIOUSNESS [None]
  - HYPOTENSION [None]
  - RENAL FAILURE ACUTE [None]
  - RHABDOMYOLYSIS [None]
